FAERS Safety Report 13951073 (Version 2)
Quarter: 2017Q3

REPORT INFORMATION
  Report Type: Spontaneous
  Country: US (occurrence: US)
  Receive Date: 20170908
  Receipt Date: 20170913
  Transmission Date: 20171128
  Serious: Yes (Other)
  Sender: FDA-Public Use
  Company Number: US-PFIZER INC-2017384835

PATIENT
  Age: 66 Year
  Sex: Female
  Weight: 42.64 kg

DRUGS (7)
  1. MINOXIDIL. [Concomitant]
     Active Substance: MINOXIDIL
     Dosage: 2.5 MG, UNK
  2. EFFEXOR [Suspect]
     Active Substance: VENLAFAXINE HYDROCHLORIDE
     Indication: POST-TRAUMATIC STRESS DISORDER
     Dosage: UNK
  3. MELOXICAM. [Concomitant]
     Active Substance: MELOXICAM
     Indication: ARTHRITIS
     Dosage: UNK, 1X/DAY (IN THE MORNING)
  4. EFFEXOR [Suspect]
     Active Substance: VENLAFAXINE HYDROCHLORIDE
     Indication: DEPRESSION
  5. ESTRACE [Concomitant]
     Active Substance: ESTRADIOL
     Dosage: 2 MG, UNK
  6. ATIVAN [Concomitant]
     Active Substance: LORAZEPAM
     Dosage: 2 MG, 1X/DAY (AT NIGHT)
  7. TOPIRAMATE. [Concomitant]
     Active Substance: TOPIRAMATE
     Dosage: 100 MG, UNK

REACTIONS (8)
  - Suicidal ideation [Not Recovered/Not Resolved]
  - Tinnitus [Not Recovered/Not Resolved]
  - Anxiety [Not Recovered/Not Resolved]
  - Abnormal behaviour [Unknown]
  - Panic attack [Not Recovered/Not Resolved]
  - Screaming [Unknown]
  - Tremor [Unknown]
  - Memory impairment [Unknown]
